FAERS Safety Report 15496186 (Version 7)
Quarter: 2020Q3

REPORT INFORMATION
  Report Type: Report from Study
  Country: US (occurrence: US)
  Receive Date: 20181012
  Receipt Date: 20200811
  Transmission Date: 20201102
  Serious: Yes (Hospitalization)
  Sender: FDA-Public Use
  Company Number: US-ACTELION-A-NJ2018-180075

PATIENT
  Age: 53 Year
  Sex: Female
  Weight: 79.37 kg

DRUGS (3)
  1. TRACLEER [Suspect]
     Active Substance: BOSENTAN
     Indication: PULMONARY ARTERIAL HYPERTENSION
     Dosage: 125 MG, BID
     Route: 048
     Dates: start: 201104
  2. ADCIRCA [Concomitant]
     Active Substance: TADALAFIL
  3. REMODULIN [Suspect]
     Active Substance: TREPROSTINIL
     Indication: PRODUCT USED FOR UNKNOWN INDICATION
     Dosage: UNK
     Route: 058

REACTIONS (19)
  - Gastroenteritis viral [Unknown]
  - Gastrointestinal haemorrhage [Recovered/Resolved]
  - Product dose omission issue [Unknown]
  - Menopause [Unknown]
  - Pulmonary hypertension [Unknown]
  - Haemorrhoids [Recovered/Resolved]
  - Sleep disorder [Not Recovered/Not Resolved]
  - Vomiting [Unknown]
  - Application site pruritus [Unknown]
  - Night sweats [Unknown]
  - Illness [Unknown]
  - Nausea [Unknown]
  - Cough [Unknown]
  - Sneezing [Unknown]
  - Nasal congestion [Unknown]
  - Infusion site pain [Unknown]
  - Infusion site induration [Unknown]
  - Vertigo [Unknown]
  - Hypersensitivity [Unknown]

NARRATIVE: CASE EVENT DATE: 201912
